FAERS Safety Report 7505746-4 (Version None)
Quarter: 2011Q2

REPORT INFORMATION
  Report Type: 
  Country: None (occurrence: None)
  Receive Date: 20110526
  Receipt Date: 20110523
  Transmission Date: 20111010
  Serious: Yes (Hospitalization)
  Sender: FDA-Public Use
  Company Number: FR-PFIZER INC-2011110579

PATIENT
  Age: 62 Year
  Sex: Female

DRUGS (7)
  1. RISPERDAL [Concomitant]
     Dosage: UNK
     Dates: start: 20060101
  2. TERCIAN [Suspect]
     Indication: PARANOIA
  3. OXAZEPAM [Suspect]
     Dosage: 75 MG, 1X/DAY
     Route: 048
     Dates: start: 20050101
  4. LEPTICUR [Concomitant]
     Dosage: UNK
     Dates: start: 20000101
  5. DEXTROMETHORPHAN HYDROBROMIDE [Suspect]
     Indication: COUGH
     Dosage: UNK
     Route: 048
     Dates: start: 20100113, end: 20100119
  6. CEFPODOXIME PROXETIL [Suspect]
     Indication: BRONCHITIS
     Dosage: 100 MG, 4X/DAY
     Route: 048
     Dates: start: 20100113, end: 20100123
  7. TERCIAN [Suspect]
     Indication: AGITATION
     Dosage: 70 DROPS 3 X DAY
     Route: 048

REACTIONS (3)
  - CONFUSIONAL STATE [None]
  - BALANCE DISORDER [None]
  - DIZZINESS [None]
